FAERS Safety Report 20021860 (Version 1)
Quarter: 2021Q4

REPORT INFORMATION
  Report Type: Spontaneous
  Country: US (occurrence: US)
  Receive Date: 20211102
  Receipt Date: 20211102
  Transmission Date: 20220303
  Serious: No
  Sender: FDA-Public Use
  Company Number: US-JNJFOC-20211031798

PATIENT
  Age: 8 Decade
  Sex: Female

DRUGS (15)
  1. ZYRTEC [Suspect]
     Active Substance: CETIRIZINE HYDROCHLORIDE
     Indication: Urticaria
     Route: 065
     Dates: start: 20211004
  2. ZYRTEC [Suspect]
     Active Substance: CETIRIZINE HYDROCHLORIDE
     Indication: Chills
  3. ZYRTEC [Suspect]
     Active Substance: CETIRIZINE HYDROCHLORIDE
     Indication: Nausea
  4. BENADRYL [Suspect]
     Active Substance: DIPHENHYDRAMINE HYDROCHLORIDE
     Indication: Urticaria
     Route: 065
     Dates: start: 20211004
  5. BENADRYL [Suspect]
     Active Substance: DIPHENHYDRAMINE HYDROCHLORIDE
     Indication: Chills
  6. BENADRYL [Suspect]
     Active Substance: DIPHENHYDRAMINE HYDROCHLORIDE
     Indication: Nausea
  7. PEPCID [Suspect]
     Active Substance: FAMOTIDINE
     Indication: Urticaria
     Route: 065
     Dates: start: 20211004
  8. PEPCID [Suspect]
     Active Substance: FAMOTIDINE
     Indication: Chills
  9. PEPCID [Suspect]
     Active Substance: FAMOTIDINE
     Indication: Nausea
  10. COVID-19 VACCINE [Concomitant]
     Indication: Immunisation
     Dosage: BOOSTER SHOOT
     Route: 065
     Dates: start: 20211004
  11. COVID-19 VACCINE [Concomitant]
     Dosage: 1ST DOSE
     Route: 065
     Dates: start: 20210109
  12. COVID-19 VACCINE [Concomitant]
     Dosage: 2ND DOSE
     Route: 065
     Dates: start: 20210129
  13. EPIPEN [Concomitant]
     Active Substance: EPINEPHRINE
     Indication: Hypersensitivity
  14. TYLENOL [Concomitant]
     Active Substance: ACETAMINOPHEN
     Indication: Headache
     Route: 065
     Dates: start: 20211004
  15. TYLENOL [Concomitant]
     Active Substance: ACETAMINOPHEN
     Indication: Pain

REACTIONS (2)
  - Product use in unapproved indication [Unknown]
  - Therapeutic response unexpected [Unknown]

NARRATIVE: CASE EVENT DATE: 20211004
